FAERS Safety Report 11045349 (Version 1)
Quarter: 2015Q2

REPORT INFORMATION
  Report Type: Spontaneous
  Country: US (occurrence: US)
  Receive Date: 20150417
  Receipt Date: 20150417
  Transmission Date: 20150821
  Serious: Yes (Hospitalization, Other)
  Sender: FDA-Public Use
  Company Number: US-MYLANLABS-2015M1012915

PATIENT

DRUGS (1)
  1. SALBUTAMOL [Suspect]
     Active Substance: ALBUTEROL

REACTIONS (3)
  - Familial periodic paralysis [Recovered/Resolved]
  - Condition aggravated [Recovered/Resolved]
  - Hyperinsulinaemia [Unknown]
